FAERS Safety Report 14431107 (Version 2)
Quarter: 2018Q1

REPORT INFORMATION
  Report Type: Report from Study
  Country: US (occurrence: US)
  Receive Date: 20180124
  Receipt Date: 20180131
  Transmission Date: 20180509
  Serious: Yes (Other)
  Sender: FDA-Public Use
  Company Number: US-ROCHE-2059331

PATIENT
  Age: 38 Year
  Sex: Female

DRUGS (2)
  1. OCREVUS [Suspect]
     Active Substance: OCRELIZUMAB
     Dosage: SECOND OCREVUS INFUSION
     Route: 042
     Dates: start: 201712
  2. OCREVUS [Suspect]
     Active Substance: OCRELIZUMAB
     Indication: MULTIPLE SCLEROSIS RELAPSE
     Dosage: FIRST OCREVUS INFUSION
     Route: 042
     Dates: start: 201706

REACTIONS (3)
  - Bipolar disorder [Not Recovered/Not Resolved]
  - Attention deficit/hyperactivity disorder [Not Recovered/Not Resolved]
  - Depression [Not Recovered/Not Resolved]

NARRATIVE: CASE EVENT DATE: 20180118
